FAERS Safety Report 6010330-8 (Version None)
Quarter: 2008Q4

REPORT INFORMATION
  Report Type: 
  Country: None (occurrence: None)
  Receive Date: 20081218
  Receipt Date: 20080818
  Transmission Date: 20090506
  Serious: Yes (Other)
  Sender: FDA-Public Use
  Company Number: A0740920A

PATIENT
  Sex: Female

DRUGS (1)
  1. FLONASE [Suspect]
     Indication: PNEUMONIA
     Dosage: 1SPR UNKNOWN
     Route: 045

REACTIONS (1)
  - ANOSMIA [None]
